FAERS Safety Report 11198331 (Version 1)
Quarter: 2015Q2

REPORT INFORMATION
  Report Type: Spontaneous
  Country: AU (occurrence: AU)
  Receive Date: 20150618
  Receipt Date: 20150618
  Transmission Date: 20150821
  Serious: Yes (Other)
  Sender: FDA-Public Use
  Company Number: AU-MACLEODS PHARMACEUTICALS US LTD-MAC2015001782

PATIENT

DRUGS (1)
  1. SILDENAFIL. [Suspect]
     Active Substance: SILDENAFIL
     Indication: PULMONARY HYPERTENSION
     Dosage: 0.5 MG/KG, 6 HOURLY
     Route: 048

REACTIONS (4)
  - Hypotension [Recovering/Resolving]
  - Prerenal failure [Recovering/Resolving]
  - Lactic acidosis [Recovering/Resolving]
  - Anuria [Recovering/Resolving]
